FAERS Safety Report 20544039 (Version 1)
Quarter: 2022Q1

REPORT INFORMATION
  Report Type: Other
  Country: KR (occurrence: None)
  Receive Date: 20220303
  Receipt Date: 20220303
  Transmission Date: 20220424
  Serious: Yes (Other)
  Sender: FDA-Public Use
  Company Number: KR-ROCHE-3038070

PATIENT
  Age: 51 Year
  Sex: Female

DRUGS (3)
  1. RITUXIMAB [Suspect]
     Active Substance: RITUXIMAB
     Indication: Neuromyelitis optica spectrum disorder
     Dosage: 1000 MG
     Route: 042
     Dates: start: 201703
  2. METHYLPREDNISOLONE [Concomitant]
     Active Substance: METHYLPREDNISOLONE
     Route: 042
  3. ENTECAVIR [Concomitant]
     Active Substance: ENTECAVIR

REACTIONS (2)
  - Hepatitis B reactivation [Recovered/Resolved]
  - Off label use [Unknown]
